FAERS Safety Report 4854442-0 (Version None)
Quarter: 2005Q4

REPORT INFORMATION
  Report Type: 
  Country: None (occurrence: None)
  Receive Date: 20051215
  Receipt Date: 20051118
  Transmission Date: 20060501
  Serious: Yes (Death)
  Sender: FDA-Public Use
  Company Number: US-BRISTOL-MYERS SQUIBB COMPANY-13186705

PATIENT
  Age: 64 Year
  Sex: Male

DRUGS (6)
  1. MEGACE [Suspect]
     Indication: INCREASED APPETITE
     Route: 048
     Dates: start: 20050919
  2. ELOXATIN [Concomitant]
  3. LEUCOVORIN CALCIUM [Concomitant]
  4. FLUOROURACIL [Concomitant]
  5. COMPAZINE [Concomitant]
  6. LOMOTIL [Concomitant]

REACTIONS (3)
  - CACHEXIA [None]
  - MALIGNANT NEOPLASM PROGRESSION [None]
  - RENAL FAILURE [None]
